FAERS Safety Report 9087238 (Version 4)
Quarter: 2013Q2

REPORT INFORMATION
  Report Type: Report from Study
  Country: US (occurrence: US)
  Receive Date: 20130201
  Receipt Date: 20130404
  Transmission Date: 20140414
  Serious: Yes (Hospitalization)
  Sender: FDA-Public Use
  Company Number: US-ROCHE-1144971

PATIENT
  Age: 56 Year
  Sex: Female
  Weight: 78.09 kg

DRUGS (10)
  1. RO 5190591 [Suspect]
     Indication: CHRONIC HEPATITIS C
     Dosage: DATE OF LAST DOSE PRIOR TO SAE: 08/OCT/2012
     Route: 048
     Dates: start: 20121003, end: 20121009
  2. RO 5190591 [Suspect]
     Indication: HEPATIC CIRRHOSIS
  3. PEG-INTERFERON ALFA 2A [Suspect]
     Indication: CHRONIC HEPATITIS C
     Dosage: DATE OF LAST DOSE PRIOR TO SAE: 03/OCT/2012
     Route: 058
     Dates: start: 20121003, end: 20121009
  4. PEG-INTERFERON ALFA 2A [Suspect]
     Indication: HEPATIC CIRRHOSIS
  5. RIBAVIRIN [Suspect]
     Indication: CHRONIC HEPATITIS C
     Dosage: DATE OF LAST DOSE PRIOR TO SAE: 08/OCT/2012
     Route: 048
     Dates: start: 20121003, end: 20121009
  6. RIBAVIRIN [Suspect]
     Indication: HEPATIC CIRRHOSIS
  7. RITONAVIR [Suspect]
     Indication: CHRONIC HEPATITIS C
     Dosage: DATE OF LAST DOSE PRIOR TO SAE: 08/OCT/2012
     Route: 048
     Dates: start: 20121003, end: 20121009
  8. RITONAVIR [Suspect]
     Indication: HEPATIC CIRRHOSIS
  9. URSODIOL [Concomitant]
     Indication: CHOLELITHIASIS
     Route: 048
     Dates: start: 201208
  10. VICODIN [Concomitant]
     Route: 065
     Dates: start: 20121006

REACTIONS (2)
  - Haemobilia [Recovered/Resolved]
  - Gastrointestinal haemorrhage [None]
